FAERS Safety Report 5583086-0 (Version None)
Quarter: 2008Q1

REPORT INFORMATION
  Report Type: 
  Country: None (occurrence: None)
  Receive Date: 20080107
  Receipt Date: 20071226
  Transmission Date: 20080703
  Serious: Yes (Life-Threatening, Other)
  Sender: FDA-Public Use
  Company Number: JP-WYE-H01893408

PATIENT
  Sex: Female
  Weight: 49 kg

DRUGS (5)
  1. MYLOTARG [Suspect]
     Indication: ACUTE MYELOID LEUKAEMIA RECURRENT
     Route: 041
     Dates: start: 20061127, end: 20061127
  2. MYLOTARG [Suspect]
     Route: 041
     Dates: start: 20070111, end: 20070111
  3. DIFLUCAN [Concomitant]
     Indication: PROPHYLAXIS
     Route: 048
     Dates: start: 20061016
  4. BAKTAR [Concomitant]
     Indication: PROPHYLAXIS
     Dosage: 1 DOSE FORM PER DAY
     Route: 048
     Dates: start: 20061016
  5. GASTER [Concomitant]
     Indication: PROPHYLAXIS
     Route: 048
     Dates: start: 20061016

REACTIONS (9)
  - ACUTE MYELOID LEUKAEMIA [None]
  - C-REACTIVE PROTEIN INCREASED [None]
  - FUNGAEMIA [None]
  - HEPATIC FUNCTION ABNORMAL [None]
  - INFUSION RELATED REACTION [None]
  - MALIGNANT NEOPLASM PROGRESSION [None]
  - NEUTROPENIA [None]
  - PLATELET COUNT DECREASED [None]
  - SEPSIS [None]
